FAERS Safety Report 5562041-0 (Version None)
Quarter: 2007Q4

REPORT INFORMATION
  Report Type: 
  Country: None (occurrence: None)
  Receive Date: 20071215
  Receipt Date: 20071003
  Transmission Date: 20080405
  Serious: No
  Sender: FDA-Public Use
  Company Number: US-AMGEN-KDL246325

PATIENT
  Sex: Female

DRUGS (2)
  1. ENBREL [Suspect]
     Indication: PSORIATIC ARTHROPATHY
     Route: 058
     Dates: start: 20070622
  2. METHOTREXATE [Concomitant]
     Route: 048
     Dates: start: 20050101

REACTIONS (6)
  - ARTHRALGIA [None]
  - HOT FLUSH [None]
  - MUSCULAR WEAKNESS [None]
  - NIGHT SWEATS [None]
  - PAIN IN EXTREMITY [None]
  - PSORIATIC ARTHROPATHY [None]
